FAERS Safety Report 7364290-8 (Version None)
Quarter: 2011Q1

REPORT INFORMATION
  Report Type: 
  Country: None (occurrence: None)
  Receive Date: 20110321
  Receipt Date: 20110311
  Transmission Date: 20110831
  Serious: Yes (Other)
  Sender: FDA-Public Use
  Company Number: B0703412A

PATIENT
  Sex: Male

DRUGS (1)
  1. AVOLVE [Suspect]
     Indication: BENIGN PROSTATIC HYPERPLASIA
     Dosage: 1IUAX PER DAY
     Route: 048
     Dates: start: 20101201

REACTIONS (3)
  - PRODUCTIVE COUGH [None]
  - ASTHMA [None]
  - COUGH [None]
